FAERS Safety Report 11583060 (Version 1)
Quarter: 2015Q4

REPORT INFORMATION
  Report Type: Spontaneous
  Country: US (occurrence: US)
  Receive Date: 20151001
  Receipt Date: 20151001
  Transmission Date: 20160304
  Serious: No
  Sender: FDA-Public Use
  Company Number: US-ROCHE-687656

PATIENT
  Age: 50 Year
  Sex: Male

DRUGS (3)
  1. RIBAVIRIN. [Suspect]
     Active Substance: RIBAVIRIN
     Indication: HEPATITIS C
     Dosage: ONE IN THE MORNING AND ONE IN THE EVENING. IN DIVIDED DOSES.
     Route: 048
  2. PEGASYS [Interacting]
     Active Substance: PEGINTERFERON ALFA-2A
     Indication: HEPATITIS C
     Dosage: FORM: PRE-FILLED SYRINGE
     Route: 058
  3. TRUVADA [Interacting]
     Active Substance: EMTRICITABINE\TENOFOVIR DISOPROXIL FUMARATE
     Indication: PRODUCT USED FOR UNKNOWN INDICATION
     Route: 065

REACTIONS (12)
  - Injection site bruising [Unknown]
  - Hyperhidrosis [Not Recovered/Not Resolved]
  - Drug interaction [Unknown]
  - Injection site discolouration [Unknown]
  - Drug administration error [Unknown]
  - Eye disorder [Recovering/Resolving]
  - Dizziness [Unknown]
  - Blood pressure increased [Recovered/Resolved]
  - Eyelid thickening [Unknown]
  - Conjunctivitis [Recovering/Resolving]
  - Eyelid oedema [Not Recovered/Not Resolved]
  - Eye swelling [Not Recovered/Not Resolved]

NARRATIVE: CASE EVENT DATE: 20100129
